FAERS Safety Report 17132526 (Version 1)
Quarter: 2019Q4

REPORT INFORMATION
  Report Type: Spontaneous
  Country: US (occurrence: US)
  Receive Date: 20191210
  Receipt Date: 20191210
  Transmission Date: 20200122
  Serious: Yes (Hospitalization, Other)
  Sender: FDA-Public Use
  Company Number: US-TEVA-2019-US-1149965

PATIENT
  Age: 17 Year
  Sex: Male

DRUGS (3)
  1. HALOPERIDOL. [Suspect]
     Active Substance: HALOPERIDOL
     Indication: MENTAL DISORDER
     Route: 065
  2. BENZATROPINE [Interacting]
     Active Substance: BENZTROPINE
     Indication: PROPHYLAXIS
     Route: 065
  3. LITHIUM. [Suspect]
     Active Substance: LITHIUM
     Indication: MENTAL DISORDER
     Route: 065

REACTIONS (11)
  - Metabolic acidosis [Unknown]
  - Urinary tract obstruction [Recovered/Resolved]
  - Urinary tract infection [Unknown]
  - Drug interaction [Unknown]
  - Hyperprolactinaemia [Recovered/Resolved]
  - Hyponatraemia [Unknown]
  - Acute kidney injury [Recovered/Resolved]
  - Hypothyroidism [Unknown]
  - Toxicity to various agents [Unknown]
  - Hydronephrosis [Unknown]
  - Galactorrhoea [Unknown]
